FAERS Safety Report 16112465 (Version 1)
Quarter: 2019Q1

REPORT INFORMATION
  Report Type: Spontaneous
  Country: US (occurrence: US)
  Receive Date: 20190325
  Receipt Date: 20190325
  Transmission Date: 20190418
  Serious: No
  Sender: FDA-Public Use
  Company Number: US-PFIZER INC-2019048705

PATIENT
  Age: 58 Year
  Sex: Female

DRUGS (1)
  1. ADVIL COLD AND SINUS [Suspect]
     Active Substance: IBUPROFEN\PSEUDOEPHEDRINE HYDROCHLORIDE
     Indication: HYPERSENSITIVITY
     Dosage: 4 DF, AS NEEDED [200MG IBUPROFEN; 30MG PSEUDOEPHEDRINE, 2 TABLETS IN THE AM AND 2 TABLETS AT NIGHT]

REACTIONS (5)
  - Oropharyngeal pain [Not Recovered/Not Resolved]
  - Foreign body in respiratory tract [Unknown]
  - Product quality issue [Not Recovered/Not Resolved]
  - Poor quality product administered [Unknown]
  - Product physical issue [Not Recovered/Not Resolved]
